FAERS Safety Report 5680676-1 (Version None)
Quarter: 2008Q1

REPORT INFORMATION
  Report Type: 
  Country: None (occurrence: None)
  Receive Date: 20080326
  Receipt Date: 20080103
  Transmission Date: 20080703
  Serious: No
  Sender: FDA-Public Use
  Company Number: US-BAUSCH-2008BL000037

PATIENT
  Age: 27 Year
  Sex: Male

DRUGS (3)
  1. LOTEMAX [Suspect]
     Indication: EYE INFLAMMATION
     Route: 047
     Dates: start: 20071219, end: 20080101
  2. LOTEMAX [Suspect]
     Route: 047
     Dates: start: 20080102, end: 20080102
  3. LOTEMAX [Suspect]
     Route: 047
     Dates: start: 20080103

REACTIONS (3)
  - EYE PAIN [None]
  - LACRIMATION INCREASED [None]
  - MYDRIASIS [None]
